FAERS Safety Report 22089833 (Version 1)
Quarter: 2023Q1

REPORT INFORMATION
  Report Type: Spontaneous
  Country: CN (occurrence: None)
  Receive Date: 20230313
  Receipt Date: 20230313
  Transmission Date: 20230417
  Serious: Yes (Life-Threatening)
  Sender: FDA-Public Use
  Company Number: 2023A058447

PATIENT
  Age: 53 Year
  Sex: Male
  Weight: 63 kg

DRUGS (2)
  1. IMFINZI [Suspect]
     Active Substance: DURVALUMAB
     Indication: Small cell lung cancer extensive stage
     Dosage: 1000.0MG EVERY CYCLE
     Dates: start: 20221122
  2. ETOPOSIDE [Concomitant]
     Active Substance: ETOPOSIDE
     Indication: Small cell lung cancer extensive stage

REACTIONS (3)
  - Eye swelling [Unknown]
  - Blindness [Unknown]
  - Mass [Unknown]
